FAERS Safety Report 9665677 (Version 1)
Quarter: 2013Q4

REPORT INFORMATION
  Report Type: Spontaneous
  Country: US (occurrence: None)
  Receive Date: 20131031
  Receipt Date: 20131031
  Transmission Date: 20140711
  Serious: Yes (Other)
  Sender: FDA-Public Use
  Company Number: None

PATIENT
  Age: 33 Year
  Sex: Female

DRUGS (2)
  1. LEVAQUIN [Suspect]
     Indication: OTITIS MEDIA CHRONIC
     Dosage: 1 TABLET QD ORAL
     Route: 048
     Dates: start: 20131026, end: 20131029
  2. OFLOXACIN 0.3 % OTIC SOLUTION [Concomitant]

REACTIONS (1)
  - Hypoaesthesia [None]
